FAERS Safety Report 15384043 (Version 2)
Quarter: 2019Q2

REPORT INFORMATION
  Report Type: Spontaneous
  Country: US (occurrence: US)
  Receive Date: 20180914
  Receipt Date: 20190624
  Transmission Date: 20190711
  Serious: Yes (Other)
  Sender: FDA-Public Use
  Company Number: US-BRISTOL-MYERS SQUIBB COMPANY-BMS-2018-083584

PATIENT
  Age: 52 Year
  Sex: Female

DRUGS (1)
  1. DIDANOSINE. [Suspect]
     Active Substance: DIDANOSINE
     Indication: HIV INFECTION
     Dosage: 400 MILLIGRAM, QD
     Route: 065

REACTIONS (2)
  - Retinopathy [Unknown]
  - Neuropathy peripheral [Unknown]
